FAERS Safety Report 5390678-0 (Version None)
Quarter: 2007Q3

REPORT INFORMATION
  Report Type: 
  Country: None (occurrence: None)
  Receive Date: 20070718
  Receipt Date: 20070712
  Transmission Date: 20080115
  Serious: Yes (Other)
  Sender: FDA-Public Use
  Company Number: JP-SHR-JP-2007-025981

PATIENT
  Age: 10 Year
  Sex: Female

DRUGS (2)
  1. FLUDARA [Suspect]
     Indication: TRANSPLANT
     Dosage: 25 MG/M2, CYCLES
     Route: 042
     Dates: start: 20070705, end: 20070708
  2. L-PAM [Concomitant]
     Indication: TRANSPLANT
     Dosage: 3 DAYS

REACTIONS (3)
  - ABDOMINAL PAIN [None]
  - CONVULSION [None]
  - VISION BLURRED [None]
